FAERS Safety Report 7210560-3 (Version None)
Quarter: 2011Q1

REPORT INFORMATION
  Report Type: 
  Country: None (occurrence: None)
  Receive Date: 20110105
  Receipt Date: 20101221
  Transmission Date: 20110831
  Serious: Yes (Hospitalization, Other)
  Sender: FDA-Public Use
  Company Number: PHHY2010US89698

PATIENT
  Sex: Male

DRUGS (3)
  1. INTERFERON BETA-1B [Suspect]
     Indication: MULTIPLE SCLEROSIS
     Dosage: 8 MIU, QOD
     Route: 058
     Dates: start: 20030507, end: 20070701
  2. INTERFERON BETA-1B [Suspect]
     Dosage: UNK
     Dates: start: 20080918, end: 20091201
  3. INTERFERON BETA-1B [Suspect]
     Dosage: 8 MIU, QOD
     Route: 058
     Dates: start: 20100816

REACTIONS (9)
  - TOOTH LOSS [None]
  - CARDIAC DISORDER [None]
  - CHILLS [None]
  - INJECTION SITE HAEMATOMA [None]
  - CHEST PAIN [None]
  - DEPRESSION [None]
  - ALOPECIA [None]
  - INJECTION SITE PAIN [None]
  - HEADACHE [None]
